FAERS Safety Report 5285613-X (Version None)
Quarter: 2007Q1

REPORT INFORMATION
  Report Type: 
  Country: None (occurrence: None)
  Receive Date: 20061216
  Receipt Date: 20061130
  Transmission Date: 20070707
  Serious: No
  Sender: FDA-Public Use
  Company Number: 2006SP004222

PATIENT
  Age: 44 Year
  Sex: Female
  Weight: 53.5244 kg

DRUGS (2)
  1. LUNESTA [Suspect]
     Indication: INSOMNIA
     Dosage: 3 MG; PRN; ORAL
     Route: 048
     Dates: start: 20060101
  2. TYLENOL [Concomitant]

REACTIONS (1)
  - TINNITUS [None]
